FAERS Safety Report 18422755 (Version 1)
Quarter: 2020Q4

REPORT INFORMATION
  Report Type: Spontaneous
  Country: US (occurrence: US)
  Receive Date: 20201023
  Receipt Date: 20201023
  Transmission Date: 20210114
  Serious: Yes (Other)
  Sender: FDA-Public Use
  Company Number: US-ELI_LILLY_AND_COMPANY-US202010006115

PATIENT
  Sex: Female

DRUGS (3)
  1. PREDNISONE. [Suspect]
     Active Substance: PREDNISONE
     Indication: PRODUCT USED FOR UNKNOWN INDICATION
     Dosage: 180 MG, UNKNOWN
     Route: 065
  2. PREDNISONE. [Suspect]
     Active Substance: PREDNISONE
     Dosage: 3 MG, UNKNOWN
     Route: 065
  3. FORTEO [Suspect]
     Active Substance: TERIPARATIDE
     Indication: PRODUCT USED FOR UNKNOWN INDICATION
     Dosage: UNK UNK, UNKNOWN
     Route: 065
     Dates: start: 2009

REACTIONS (16)
  - Systemic lupus erythematosus [Unknown]
  - Gastrooesophageal reflux disease [Unknown]
  - Bone density decreased [Unknown]
  - Osteonecrosis [Unknown]
  - Spinal pain [Unknown]
  - Pruritus [Unknown]
  - Rash [Unknown]
  - Tooth loss [Unknown]
  - Skin exfoliation [Unknown]
  - Insomnia [Unknown]
  - Internal haemorrhage [Unknown]
  - Joint noise [Unknown]
  - Photosensitivity reaction [Unknown]
  - Platelet count decreased [Unknown]
  - Cardiac disorder [Unknown]
  - Skin discolouration [Unknown]

NARRATIVE: CASE EVENT DATE: 2014
